FAERS Safety Report 10705715 (Version 1)
Quarter: 2015Q1

REPORT INFORMATION
  Report Type: Spontaneous
  Country: GB (occurrence: GB)
  Receive Date: 20150112
  Receipt Date: 20150112
  Transmission Date: 20150721
  Serious: Yes (Disabling)
  Sender: FDA-Public Use
  Company Number: GB-GLAXOSMITHKLINE INC.-GB2015000534

PATIENT

DRUGS (5)
  1. ANGIOTENSIN [Concomitant]
     Active Substance: ANGIOTENSIN
  2. STATINS [Concomitant]
     Active Substance: UNSPECIFIED INGREDIENT
  3. RELVAR ELLIPTA [Suspect]
     Active Substance: FLUTICASONE FUROATE\VILANTEROL TRIFENATATE
     Indication: CHRONIC OBSTRUCTIVE PULMONARY DISEASE
     Dosage: 1 DF, QD
     Route: 055
     Dates: start: 20141104, end: 20141118
  4. NITRATES [Concomitant]
  5. NSAID [Concomitant]
     Active Substance: UNSPECIFIED INGREDIENT

REACTIONS (1)
  - Dyspnoea [Not Recovered/Not Resolved]
